FAERS Safety Report 23648291 (Version 1)
Quarter: 2024Q1

REPORT INFORMATION
  Report Type: Spontaneous
  Country: US (occurrence: None)
  Receive Date: 20240318
  Receipt Date: 20240318
  Transmission Date: 20240410
  Serious: Yes (Other)
  Sender: FDA-Public Use
  Company Number: None

PATIENT
  Age: 79 Year
  Sex: Female
  Weight: 67.5 kg

DRUGS (11)
  1. RISPERIDONE [Suspect]
     Active Substance: RISPERIDONE
     Indication: Depression
     Dosage: OTHER QUANTITY : 1 TABLET(S);?FREQUENCY : DAILY;?
     Route: 048
     Dates: start: 20160101, end: 20191106
  2. RISPERIDONE [Suspect]
     Active Substance: RISPERIDONE
     Indication: Emotional distress
  3. GABAPENTIN [Suspect]
     Active Substance: GABAPENTIN
  4. SERTRALINE [Concomitant]
     Active Substance: SERTRALINE HYDROCHLORIDE
  5. AMLODIPINE [Concomitant]
     Active Substance: AMLODIPINE BESYLATE
  6. PRAZOSIN [Concomitant]
     Active Substance: PRAZOSIN
  7. gabapentin (1/31/2024 reduced dose to 600 mg tid) [Concomitant]
  8. DULOXETINE [Concomitant]
     Active Substance: DULOXETINE
  9. BUSPIRONE [Concomitant]
     Active Substance: BUSPIRONE HYDROCHLORIDE
  10. TRAMADOL [Concomitant]
     Active Substance: TRAMADOL\TRAMADOL HYDROCHLORIDE
  11. Uromag [Concomitant]

REACTIONS (5)
  - Tardive dyskinesia [None]
  - Dizziness [None]
  - Fall [None]
  - Logorrhoea [None]
  - Mania [None]

NARRATIVE: CASE EVENT DATE: 20191106
